FAERS Safety Report 24337141 (Version 6)
Quarter: 2024Q4

REPORT INFORMATION
  Report Type: Spontaneous
  Country: CA (occurrence: CA)
  Receive Date: 20240919
  Receipt Date: 20241214
  Transmission Date: 20250115
  Serious: Yes (Hospitalization, Other)
  Sender: CELLTRION
  Company Number: CA-PFIZER INC-202300453726

PATIENT

DRUGS (16)
  1. INFLECTRA [Suspect]
     Active Substance: INFLIXIMAB-DYYB
     Indication: Crohn^s disease
     Dosage: 5 MG/KG, Q 0, 2, 6, THEN EVERY 8 WEEKS
     Route: 042
     Dates: start: 20180802, end: 20201104
  2. INFLECTRA [Suspect]
     Active Substance: INFLIXIMAB-DYYB
     Dosage: 5 MG/KG, EVERY 6 WEEKS
     Route: 042
     Dates: start: 20201216
  3. INFLECTRA [Suspect]
     Active Substance: INFLIXIMAB-DYYB
     Dosage: 5 MG/KG, EVERY 6 WEEKS
     Route: 042
     Dates: start: 20231109
  4. INFLECTRA [Suspect]
     Active Substance: INFLIXIMAB-DYYB
     Dosage: 5 MG/KG (390 MG), AFTER 8 WEEKS (PRESCRIBED EVERY 6 WEEKS)
     Route: 042
     Dates: start: 20240104
  5. INFLECTRA [Suspect]
     Active Substance: INFLIXIMAB-DYYB
     Dosage: 5 MG/KG (390 MG), EVERY 6 WEEKS
     Route: 042
     Dates: start: 20240215
  6. INFLECTRA [Suspect]
     Active Substance: INFLIXIMAB-DYYB
     Dosage: 5 MG/KG (390 MG), AFTER 5 WEEKS AND 5 DAYS (PRESCRIBED EVERY 6 WEEKS)
     Route: 042
     Dates: start: 20240326
  7. INFLECTRA [Suspect]
     Active Substance: INFLIXIMAB-DYYB
     Dosage: 5 MG/KG (390 MG), AFTER 5 WEEKS AND 5 DAYS (PRESCRIBED EVERY 6 WEEKS)
     Route: 042
     Dates: start: 20240507
  8. INFLECTRA [Suspect]
     Active Substance: INFLIXIMAB-DYYB
     Dosage: 390 MG, AFTER 6 WEEKS AND 2 DAYS (PRESCRIBED EVERY 6 WEEKS)
     Route: 042
     Dates: start: 20240620
  9. INFLECTRA [Suspect]
     Active Substance: INFLIXIMAB-DYYB
     Dosage: 390 MG 5 WEEKS 5 DAYS (5MG/KG, EVERY 6 WEEKS)
     Route: 042
     Dates: start: 20240730
  10. INFLECTRA [Suspect]
     Active Substance: INFLIXIMAB-DYYB
     Dosage: 390 MG, EVERY 6 WEEKS [5 MG/KG]
     Route: 042
     Dates: start: 20240910
  11. INFLECTRA [Suspect]
     Active Substance: INFLIXIMAB-DYYB
     Dosage: 380 MG, AFTER 6 WEEKS (5 MG/KG, EVERY 6 WEEKS)
     Route: 042
     Dates: start: 20241022
  12. INFLECTRA [Suspect]
     Active Substance: INFLIXIMAB-DYYB
     Dosage: 390 MG, 6 WEEKS (5 MG/KG, EVERY 6 WEEKS)
     Route: 042
     Dates: start: 20241203
  13. VITAMIN B12 [Concomitant]
     Active Substance: CYANOCOBALAMIN
     Dosage: UNK
  14. CITALOPRAM [Concomitant]
     Active Substance: CITALOPRAM
     Dosage: UNK
  15. FERAMAX [Concomitant]
     Active Substance: IRON\POLYSACCHARIDES
     Dosage: UNK
  16. VITAMINS NOS [Concomitant]
     Active Substance: VITAMINS

REACTIONS (13)
  - Dehydration [Recovered/Resolved]
  - Condition aggravated [Recovering/Resolving]
  - Asthenia [Not Recovered/Not Resolved]
  - Vomiting [Recovered/Resolved]
  - Diarrhoea [Recovered/Resolved]
  - Nausea [Recovered/Resolved]
  - Fatigue [Not Recovered/Not Resolved]
  - Gastric infection [Recovered/Resolved]
  - Arthralgia [Recovered/Resolved]
  - Arthritis [Unknown]
  - COVID-19 [Recovered/Resolved]
  - Respiratory tract infection [Unknown]
  - Inappropriate schedule of product administration [Unknown]

NARRATIVE: CASE EVENT DATE: 20230101
